FAERS Safety Report 15306535 (Version 1)
Quarter: 2018Q3

REPORT INFORMATION
  Report Type: Spontaneous
  Country: AR (occurrence: AR)
  Receive Date: 20180822
  Receipt Date: 20180822
  Transmission Date: 20181010
  Serious: Yes (Death, Other)
  Sender: FDA-Public Use
  Company Number: AR-PFIZER INC-2017337564

PATIENT
  Age: 71 Year
  Sex: Female

DRUGS (4)
  1. IBRANCE [Suspect]
     Active Substance: PALBOCICLIB
     Dosage: 100 MG, DAILY
  2. LETROZOL [Concomitant]
     Active Substance: LETROZOLE
     Dosage: UNK
  3. AMINOMUX [Concomitant]
     Active Substance: PAMIDRONIC ACID
     Dosage: UNK
     Dates: start: 201704
  4. IBRANCE [Suspect]
     Active Substance: PALBOCICLIB
     Indication: BREAST CANCER METASTATIC
     Dosage: 125 MG, UNK
     Dates: start: 20170303

REACTIONS (5)
  - Intentional product misuse [Recovered/Resolved]
  - Nervousness [Recovered/Resolved]
  - Back pain [Recovered/Resolved]
  - Immune system disorder [Not Recovered/Not Resolved]
  - Death [Fatal]

NARRATIVE: CASE EVENT DATE: 2017
